FAERS Safety Report 6014724 (Version 2)
Quarter: 2012Q4

REPORT INFORMATION
  Report Type: 
  Country: US (occurrence: US)
  Receive Date: 20060329
  Receipt Date: 20121207
  Transmission Date: 20130627
  Serious: Yes (Hospitalization)
  Sender: FDA-Public Use
  Company Number: US-JNJFOC-20060304749

PATIENT
  Age: 57 Year
  Sex: Female
  Weight: 121.11 kg

DRUGS (6)
  1. EXTRA STRENGTH TYLENOL [Suspect]
     Route: 048
  2. EXTRA STRENGTH TYLENOL [Suspect]
     Indication: ARTHRALGIA
     Dosage: 1000 mg every 4-6 hours as needed for several years
     Route: 048
     Dates: end: 20060313
  3. MOTRIN IB [Suspect]
     Route: 048
  4. MOTRIN IB [Suspect]
     Indication: ARTHRALGIA
     Route: 048
  5. BENADRYL [Interacting]
     Route: 048
  6. BENADRYL [Interacting]
     Indication: SLEEP DISORDER
     Dosage: at night as needed for several years
     Route: 048

REACTIONS (5)
  - Hypersensitivity [Recovered/Resolved]
  - Abdominal pain upper [Not Recovered/Not Resolved]
  - Drug interaction [Unknown]
  - Diarrhoea [Recovered/Resolved]
  - Pollakiuria [Recovered/Resolved]
